FAERS Safety Report 19217548 (Version 1)
Quarter: 2021Q2

REPORT INFORMATION
  Report Type: Spontaneous
  Country: US (occurrence: US)
  Receive Date: 20210505
  Receipt Date: 20210505
  Transmission Date: 20210717
  Serious: No
  Sender: FDA-Public Use
  Company Number: None

PATIENT
  Sex: Female
  Weight: 83.25 kg

DRUGS (1)
  1. NATUROPATHIC THYROID 90 MG [Suspect]
     Active Substance: THYROID, UNSPECIFIED

REACTIONS (2)
  - Hypothyroidism [None]
  - Condition aggravated [None]
